FAERS Safety Report 12575944 (Version 3)
Quarter: 2022Q3

REPORT INFORMATION
  Report Type: Spontaneous
  Country: GB (occurrence: GB)
  Receive Date: 20160720
  Receipt Date: 20220811
  Transmission Date: 20221027
  Serious: Yes (Life-Threatening, Hospitalization, Other)
  Sender: FDA-Public Use
  Company Number: PHHY2016GB097995

PATIENT
  Age: 42 Year
  Sex: Female

DRUGS (5)
  1. PIPERACILLIN AND TAZOBACTAM [Suspect]
     Active Substance: PIPERACILLIN SODIUM\TAZOBACTAM SODIUM
     Indication: Otitis media
     Dosage: UNK
     Route: 042
  2. AMLODIPINE [Concomitant]
     Active Substance: AMLODIPINE BESYLATE
     Indication: Hypertension
     Dosage: UNK
     Route: 065
  3. DOXAZOSIN [Concomitant]
     Active Substance: DOXAZOSIN MESYLATE
     Indication: Hypertension
     Dosage: UNK
     Route: 065
  4. CANDESARTAN [Concomitant]
     Active Substance: CANDESARTAN
     Indication: Hypertension
     Dosage: UNK
     Route: 065
  5. LABETALOL [Concomitant]
     Active Substance: LABETALOL\LABETALOL HYDROCHLORIDE
     Indication: Hypertension
     Dosage: UNK
     Route: 065

REACTIONS (5)
  - Lactic acidosis [Recovered/Resolved]
  - Respiratory failure [Recovering/Resolving]
  - Cardiac arrest [Recovered/Resolved]
  - Anaphylactic reaction [Recovering/Resolving]
  - Pulseless electrical activity [Recovered/Resolved]
